FAERS Safety Report 9074885 (Version 1)
Quarter: 2013Q1

REPORT INFORMATION
  Report Type: Spontaneous
  Country: US (occurrence: US)
  Receive Date: 20130129
  Receipt Date: 20130129
  Transmission Date: 20140127
  Serious: Yes (Other)
  Sender: FDA-Public Use
  Company Number: US-TEVA-382989USA

PATIENT
  Sex: Female

DRUGS (2)
  1. AZITHROMYCIN [Suspect]
     Dosage: 200 MG/5 ML
     Route: 048
  2. SEVERAL OTHER (UNSPECIFIED) MEDICATIONS [Concomitant]

REACTIONS (3)
  - Gastric ulcer [Unknown]
  - Gastritis [Unknown]
  - Abdominal pain upper [Unknown]
